FAERS Safety Report 25958257 (Version 1)
Quarter: 2025Q4

REPORT INFORMATION
  Report Type: Spontaneous
  Country: US (occurrence: None)
  Receive Date: 20251024
  Receipt Date: 20251024
  Transmission Date: 20260117
  Serious: No
  Sender: FDA-CTU
  Company Number: None

PATIENT
  Age: 46 Year
  Sex: Female

DRUGS (1)
  1. GLEOSTINE [Suspect]
     Active Substance: LOMUSTINE
     Indication: Brain neoplasm malignant
     Dosage: 160 MG EVERY 42 DAYS ORAL
     Route: 048
     Dates: start: 20250423

REACTIONS (1)
  - Wound dehiscence [None]

NARRATIVE: CASE EVENT DATE: 20250625
